FAERS Safety Report 24308491 (Version 1)
Quarter: 2024Q3

REPORT INFORMATION
  Report Type: Spontaneous
  Country: NL (occurrence: NL)
  Receive Date: 20240911
  Receipt Date: 20240911
  Transmission Date: 20241017
  Serious: Yes (Life-Threatening)
  Sender: TEVA
  Company Number: None

PATIENT
  Age: 84 Year
  Sex: Male
  Weight: 69 kg

DRUGS (2)
  1. BECLOMETHASONE DIPROPIONATE [Suspect]
     Active Substance: BECLOMETHASONE DIPROPIONATE
     Indication: Product used for unknown indication
     Dosage: AEROSOL, 100 ?G/DOSE (MICROGRAMS PER DOSE), BECLOMETASON AEROSOL 100UG/DO / BRAND NAME NOT SPECIFIED
     Route: 065
     Dates: start: 20240710, end: 20240822
  2. TIOTROPIUM [Concomitant]
     Active Substance: TIOTROPIUM
     Indication: Product used for unknown indication
     Dosage: , 2.5 ?G/DOSE (MICROGRAMS PER DOSE), NEBULIZED 2.5UG/DO / BRAND NAME NOT SPECIFIED
     Route: 065

REACTIONS (3)
  - Dyspnoea [Recovering/Resolving]
  - Asthma [Recovering/Resolving]
  - Cough [Recovering/Resolving]
